FAERS Safety Report 14240647 (Version 2)
Quarter: 2017Q4

REPORT INFORMATION
  Report Type: Spontaneous
  Country: US (occurrence: US)
  Receive Date: 20171130
  Receipt Date: 20171205
  Transmission Date: 20180321
  Serious: Yes (Death, Hospitalization, Other)
  Sender: FDA-Public Use
  Company Number: US-PFIZER INC-2017512464

PATIENT
  Age: 37 Year
  Sex: Male
  Weight: 99.79 kg

DRUGS (8)
  1. AMITRIPTYLINE [Concomitant]
     Active Substance: AMITRIPTYLINE
     Indication: SLEEP DISORDER
     Dates: start: 2017, end: 201707
  2. TRAZODONE [Concomitant]
     Active Substance: TRAZODONE HYDROCHLORIDE
     Indication: SLEEP DISORDER
     Dates: start: 2017, end: 201707
  3. PERCOCET [Concomitant]
     Active Substance: ACETAMINOPHEN\OXYCODONE HYDROCHLORIDE
     Indication: SPINAL OPERATION
     Dates: end: 201707
  4. ATROPINE SULFATE. [Concomitant]
     Active Substance: ATROPINE SULFATE
     Indication: HYPERTENSION
     Dosage: 10 MG, 2X/DAY
     Route: 048
     Dates: start: 2016, end: 201707
  5. ZANAFLEX [Concomitant]
     Active Substance: TIZANIDINE HYDROCHLORIDE
     Dates: start: 2017, end: 201707
  6. ATROPINE SULFATE/DIPHENOXYLATE HYDROCHLORIDE [Suspect]
     Active Substance: ATROPINE SULFATE\DIPHENOXYLATE HYDROCHLORIDE
     Indication: DIARRHOEA
     Dosage: [ATROPINE SULFATE 0.025MG]/[DIPHENOXYLATE HCL 2.5MG], 1 TABLET 4 TIMES A DAY
     Route: 048
     Dates: end: 201707
  7. AMITRIPTYLINE [Concomitant]
     Active Substance: AMITRIPTYLINE
     Indication: SCIATIC NERVE INJURY
  8. METOPROLOL. [Concomitant]
     Active Substance: METOPROLOL
     Indication: BLOOD PRESSURE ABNORMAL
     Dosage: 50 MG, 2X/DAY
     Dates: end: 201707

REACTIONS (16)
  - Incoherent [Unknown]
  - Cardio-respiratory arrest [Fatal]
  - Cerebrovascular accident [Unknown]
  - Lethargy [Unknown]
  - Vomiting [Unknown]
  - Cardiac failure congestive [Unknown]
  - Mucosal dryness [Unknown]
  - Hypotonia [Unknown]
  - Respiratory depression [Unknown]
  - Hypothermia [Unknown]
  - Tachypnoea [Unknown]
  - Tachycardia [Unknown]
  - Dry skin [Unknown]
  - Seizure [Fatal]
  - Delirium [Unknown]
  - Flushing [Unknown]

NARRATIVE: CASE EVENT DATE: 2015
